FAERS Safety Report 8028398-6 (Version None)
Quarter: 2012Q1

REPORT INFORMATION
  Report Type: 
  Country: None (occurrence: None)
  Receive Date: 20120104
  Receipt Date: 20111223
  Transmission Date: 20120608
  Serious: Yes (Hospitalization)
  Sender: FDA-Public Use
  Company Number: 2011SP040494

PATIENT
  Age: 45 Year
  Sex: Female
  Weight: 90 kg

DRUGS (6)
  1. CINALONG [Concomitant]
  2. TEMOZOLOMIDE [Suspect]
     Indication: GLIOBLASTOMA MULTIFORME
     Dosage: 160 MG;PO 290 MG;PO 360 MG;PO
     Route: 048
     Dates: start: 20100125, end: 20100310
  3. TEMOZOLOMIDE [Suspect]
     Indication: GLIOBLASTOMA MULTIFORME
     Dosage: 160 MG;PO 290 MG;PO 360 MG;PO
     Route: 048
     Dates: start: 20100407, end: 20100411
  4. TEMOZOLOMIDE [Suspect]
     Indication: GLIOBLASTOMA MULTIFORME
     Dosage: 160 MG;PO 290 MG;PO 360 MG;PO
     Route: 048
     Dates: start: 20100505, end: 20100509
  5. LYRICA [Concomitant]
  6. GABAPENTIN [Concomitant]

REACTIONS (2)
  - CONDITION AGGRAVATED [None]
  - HEPATITIS B [None]
